FAERS Safety Report 5791815-6 (Version None)
Quarter: 2008Q2

REPORT INFORMATION
  Report Type: 
  Country: None (occurrence: None)
  Receive Date: 20080626
  Receipt Date: 20080311
  Transmission Date: 20081010
  Serious: No
  Sender: FDA-Public Use
  Company Number: A0714521A

PATIENT
  Sex: Female

DRUGS (6)
  1. ALLI [Suspect]
     Indication: DRUG USE FOR UNKNOWN INDICATION
  2. LASIX [Concomitant]
  3. ENALAPRIL MALEATE [Concomitant]
  4. METFORMIN HCL [Concomitant]
  5. VYTORIN [Concomitant]
  6. VERAPAMIL [Concomitant]

REACTIONS (3)
  - BLOOD PRESSURE INCREASED [None]
  - DRUG INTERACTION [None]
  - FLUID RETENTION [None]
